FAERS Safety Report 8874819 (Version 1)
Quarter: 2012Q4

REPORT INFORMATION
  Report Type: 
  Country: US (occurrence: US)
  Receive Date: 20121026
  Receipt Date: 20121026
  Transmission Date: 20130627
  Serious: No
  Sender: FDA-Public Use
  Company Number: US-AMGEN-USASP2012042401

PATIENT
  Age: 52 Year
  Sex: Female
  Weight: 117.91 kg

DRUGS (3)
  1. ENBREL [Suspect]
     Indication: PRODUCT USED FOR UNKNOWN INDICATION
     Dosage: 50 mg, 2 times/wk
     Route: 058
  2. SYNTHROID [Concomitant]
     Dosage: 25 mug, UNK
  3. ENALAPRIL [Concomitant]
     Dosage: 5 mg, UNK

REACTIONS (3)
  - Injection site erythema [Unknown]
  - Injection site rash [Unknown]
  - Injection site reaction [Unknown]
